FAERS Safety Report 24672020 (Version 1)
Quarter: 2024Q4

REPORT INFORMATION
  Report Type: Report from Study
  Country: IL (occurrence: IL)
  Receive Date: 20241127
  Receipt Date: 20241127
  Transmission Date: 20250115
  Serious: Yes (Hospitalization)
  Sender: ABBVIE
  Company Number: IL-ABBVIE-5870813

PATIENT
  Age: 62 Year
  Sex: Male
  Weight: 96 kg

DRUGS (21)
  1. VENETOCLAX [Suspect]
     Active Substance: VENETOCLAX
     Indication: Chronic lymphocytic leukaemia
     Dosage: DURATION TEXT: RAMP UP
     Route: 048
     Dates: start: 20230406, end: 20240307
  2. VENETOCLAX [Suspect]
     Active Substance: VENETOCLAX
     Indication: Chronic lymphocytic leukaemia
     Dosage: DURATION TEXT: RAMP UP
     Route: 048
     Dates: start: 20230316, end: 20230322
  3. VENETOCLAX [Suspect]
     Active Substance: VENETOCLAX
     Indication: Chronic lymphocytic leukaemia
     Dosage: DURATION TEXT: RAMP UP
     Route: 048
     Dates: start: 20230323, end: 20230329
  4. VENETOCLAX [Suspect]
     Active Substance: VENETOCLAX
     Indication: Chronic lymphocytic leukaemia
     Dosage: DURATION TEXT: RAMP UP
     Route: 048
     Dates: start: 20230330, end: 20230405
  5. VENETOCLAX [Suspect]
     Active Substance: VENETOCLAX
     Indication: Chronic lymphocytic leukaemia
     Dosage: DURATION TEXT: RAMP UP
     Route: 048
     Dates: start: 20230309, end: 20230315
  6. OBINUTUZUMAB [Suspect]
     Active Substance: OBINUTUZUMAB
     Indication: Prophylaxis
     Dosage: DURATION TEXT: CYCLE NUMBER	6
     Route: 065
     Dates: start: 20230713, end: 20230713
  7. OBINUTUZUMAB [Suspect]
     Active Substance: OBINUTUZUMAB
     Indication: Prophylaxis
     Dosage: DURATION TEXT: CYCLE NUMBER	2
     Route: 065
     Dates: start: 20230316, end: 20230316
  8. OBINUTUZUMAB [Suspect]
     Active Substance: OBINUTUZUMAB
     Indication: Prophylaxis
     Dosage: DURATION TEXT: CYCLE NUMBER	1
     Route: 065
     Dates: start: 20230216, end: 20230216
  9. OBINUTUZUMAB [Suspect]
     Active Substance: OBINUTUZUMAB
     Indication: Prophylaxis
     Dosage: DURATION TEXT: CYCLE NUMBER	2
     Route: 065
     Dates: start: 20230413, end: 20230413
  10. OBINUTUZUMAB [Suspect]
     Active Substance: OBINUTUZUMAB
     Indication: Prophylaxis
     Dosage: DURATION TEXT: CYCLE NUMBER	1
     Route: 065
     Dates: start: 20230222, end: 20230222
  11. OBINUTUZUMAB [Suspect]
     Active Substance: OBINUTUZUMAB
     Indication: Prophylaxis
     Dosage: DURATION TEXT: CYCLE NUMBER	3
     Route: 065
     Dates: start: 20230511, end: 20230511
  12. OBINUTUZUMAB [Suspect]
     Active Substance: OBINUTUZUMAB
     Indication: Prophylaxis
     Dosage: DURATION TEXT: CYCLE NUMBER	5
     Route: 065
     Dates: start: 20230615, end: 20230615
  13. OBINUTUZUMAB [Suspect]
     Active Substance: OBINUTUZUMAB
     Indication: Prophylaxis
     Dosage: DURATION TEXT: CYCLE NUMBER	1
     Route: 065
     Dates: start: 20230215, end: 20230215
  14. OBINUTUZUMAB [Suspect]
     Active Substance: OBINUTUZUMAB
     Indication: Prophylaxis
     Dosage: DURATION TEXT: CYCLE NUMBER	1
     Route: 065
     Dates: start: 20230302, end: 20230302
  15. BISOPROLOL [Concomitant]
     Active Substance: BISOPROLOL
     Indication: Hypertension
     Dates: start: 20200823
  16. RAMIPRIL [Concomitant]
     Active Substance: RAMIPRIL
     Indication: Hypertension
     Dates: start: 20200721
  17. TAMSULOSIN HYDROCHLORIDE [Concomitant]
     Active Substance: TAMSULOSIN HYDROCHLORIDE
     Indication: Prostatomegaly
     Dates: start: 20220922
  18. ASPIRIN [Concomitant]
     Active Substance: ASPIRIN
     Indication: Prophylaxis
     Dates: start: 20190721
  19. ALLOPURINOL [Concomitant]
     Active Substance: ALLOPURINOL
     Indication: Prophylaxis
     Dates: start: 20230317
  20. ACYCLOVIR [Concomitant]
     Active Substance: ACYCLOVIR
     Indication: Antiviral prophylaxis
     Dates: start: 20230616, end: 20240206
  21. OMEPRAZOLE [Concomitant]
     Active Substance: OMEPRAZOLE
     Indication: Gastrooesophageal reflux prophylaxis
     Dates: start: 20160609

REACTIONS (4)
  - Asthenia [Recovered/Resolved]
  - Diarrhoea [Recovered/Resolved]
  - Dyspnoea [Recovered/Resolved]
  - COVID-19 [Recovered/Resolved]

NARRATIVE: CASE EVENT DATE: 20230403
